FAERS Safety Report 6578790-1 (Version None)
Quarter: 2010Q1

REPORT INFORMATION
  Report Type: 
  Country: None (occurrence: None)
  Receive Date: 20100202
  Receipt Date: 20100121
  Transmission Date: 20100710
  Serious: Yes (Other)
  Sender: FDA-Public Use
  Company Number: 060001J10SWE

PATIENT
  Sex: Female

DRUGS (2)
  1. SEROPHENE [Suspect]
     Indication: INFERTILITY
  2. MEDROXYPROGESTERONE ACETATE [Concomitant]

REACTIONS (2)
  - ABORTION SPONTANEOUS [None]
  - DRUG EXPOSURE BEFORE PREGNANCY [None]
